FAERS Safety Report 25558277 (Version 1)
Quarter: 2025Q3

REPORT INFORMATION
  Report Type: Spontaneous
  Country: US (occurrence: US)
  Receive Date: 20250715
  Receipt Date: 20250715
  Transmission Date: 20251020
  Serious: Yes (Life-Threatening)
  Sender: EDGEWELL PERSONAL CARE BRANDS
  Company Number: US-Edgewell Personal Care, LLC-2180571

PATIENT
  Age: 16 Year
  Sex: Male

DRUGS (1)
  1. ALUMINUM ZIRCONIUM TETRACHLOROHYDREX GLY [Suspect]
     Active Substance: ALUMINUM ZIRCONIUM TETRACHLOROHYDREX GLY
     Indication: Skin odour abnormal
     Dates: start: 20250419, end: 20250419

REACTIONS (2)
  - Rash [Recovered/Resolved]
  - Anaphylactic reaction [Recovered/Resolved]

NARRATIVE: CASE EVENT DATE: 20250419
